FAERS Safety Report 5126132-0 (Version None)
Quarter: 2006Q3

REPORT INFORMATION
  Report Type: 
  Country: None (occurrence: None)
  Receive Date: 20060823
  Receipt Date: 20060309
  Transmission Date: 20061208
  Serious: Yes (Hospitalization)
  Sender: FDA-Public Use
  Company Number: PHEH2006US03221

PATIENT
  Age: 75 Year
  Sex: Female

DRUGS (3)
  1. FAMVIR [Suspect]
     Indication: HERPES ZOSTER
     Dosage: 500 MG , TID , ORAL
     Route: 048
     Dates: start: 20060213, end: 20060218
  2. WARFARIN SODIUM [Concomitant]
  3. BYETTA [Concomitant]

REACTIONS (4)
  - CONFUSIONAL STATE [None]
  - DIALYSIS [None]
  - POST HERPETIC NEURALGIA [None]
  - RENAL FAILURE [None]
